FAERS Safety Report 23115047 (Version 4)
Quarter: 2024Q1

REPORT INFORMATION
  Report Type: Report from Study
  Country: RU (occurrence: RU)
  Receive Date: 20231027
  Receipt Date: 20240305
  Transmission Date: 20240410
  Serious: Yes (Death, Hospitalization, Other)
  Sender: FDA-Public Use
  Company Number: RU-002147023-NVSC2022RU051562

PATIENT
  Age: 56 Year
  Sex: Female
  Weight: 75 kg

DRUGS (2)
  1. PIQRAY [Suspect]
     Active Substance: ALPELISIB
     Indication: Breast cancer
     Dosage: 300 MG, QD (EVERY DAY)
     Route: 048
     Dates: start: 20211202, end: 20220609
  2. RIBOCICLIB [Suspect]
     Active Substance: RIBOCICLIB
     Indication: Breast cancer
     Dosage: 600 MG
     Route: 065
     Dates: start: 20210825, end: 20211202

REACTIONS (10)
  - Breast cancer [Fatal]
  - Malignant neoplasm progression [Fatal]
  - Metastases to spine [Unknown]
  - Metastases to liver [Unknown]
  - Metastases to pleura [Unknown]
  - Pleurisy [Unknown]
  - Pleural effusion [Unknown]
  - Pneumothorax [Unknown]
  - Subcutaneous emphysema [Unknown]
  - Hyperglycaemia [Not Recovered/Not Resolved]

NARRATIVE: CASE EVENT DATE: 20211216
